FAERS Safety Report 6784020-8 (Version None)
Quarter: 2010Q2

REPORT INFORMATION
  Report Type: 
  Country: None (occurrence: None)
  Receive Date: 20100622
  Receipt Date: 20100611
  Transmission Date: 20101027
  Serious: Yes (Other)
  Sender: FDA-Public Use
  Company Number: US-JNJCH-2010012939

PATIENT
  Age: 1 Year
  Sex: Male
  Weight: 11.3 kg

DRUGS (1)
  1. CHILDREN'S BENADRYL ALLERGY [Suspect]
     Indication: SEASONAL ALLERGY
     Dosage: TEXT:A LITTLE LESS THAN HALF A TEASPOON TWICE
     Route: 048
     Dates: start: 20100414, end: 20100415

REACTIONS (3)
  - PNEUMONIA BACTERIAL [None]
  - PRODUCT QUALITY ISSUE [None]
  - WRONG DRUG ADMINISTERED [None]
